FAERS Safety Report 9886275 (Version 2)
Quarter: 2014Q1

REPORT INFORMATION
  Report Type: Spontaneous
  Country: US (occurrence: US)
  Receive Date: 20140210
  Receipt Date: 20140318
  Transmission Date: 20141002
  Serious: No
  Sender: FDA-Public Use
  Company Number: US-009507513-1402USA002547

PATIENT
  Age: 22 Year
  Sex: Female
  Weight: 153 kg

DRUGS (1)
  1. IMPLANON [Suspect]
     Indication: CONTRACEPTION
     Dosage: ONE ROD ONCE
     Route: 059
     Dates: start: 20110805

REACTIONS (2)
  - Medical device complication [Not Recovered/Not Resolved]
  - Drug dose omission [Unknown]
